FAERS Safety Report 23559335 (Version 1)
Quarter: 2024Q1

REPORT INFORMATION
  Report Type: Spontaneous
  Country: US (occurrence: None)
  Receive Date: 20240222
  Receipt Date: 20240222
  Transmission Date: 20240410
  Serious: Yes (Other)
  Sender: FDA-Public Use
  Company Number: None

PATIENT
  Age: 53 Year
  Sex: Female
  Weight: 68.04 kg

DRUGS (1)
  1. NEXPLANON [Suspect]
     Active Substance: ETONOGESTREL
     Indication: Hormonal contraception
     Dosage: OTHER FREQUENCY : ONCE EVERY 3 YEARS;?
     Route: 015
     Dates: start: 20220901

REACTIONS (1)
  - Pregnancy with implant contraceptive [None]

NARRATIVE: CASE EVENT DATE: 20240222
